FAERS Safety Report 6819875-1 (Version None)
Quarter: 2010Q3

REPORT INFORMATION
  Report Type: 
  Country: None (occurrence: None)
  Receive Date: 20100707
  Receipt Date: 20100625
  Transmission Date: 20110219
  Serious: Yes (Hospitalization)
  Sender: FDA-Public Use
  Company Number: CA-ELI_LILLY_AND_COMPANY-CA201005006618

PATIENT
  Age: 88 Year
  Sex: Female
  Weight: 58.957 kg

DRUGS (5)
  1. FORTEO [Suspect]
     Indication: OSTEOPOROSIS
     Dosage: 20 UG, DAILY (1/D)
     Route: 058
     Dates: start: 20100326, end: 20100331
  2. CALCIUM CARBONATE [Concomitant]
  3. VITAMIN D [Concomitant]
  4. TEMAZEPAM [Concomitant]
  5. PANTOLOC /01263201/ [Concomitant]
     Dosage: 40 MG, UNK

REACTIONS (6)
  - COGNITIVE DISORDER [None]
  - DIPLOPIA [None]
  - GAIT DISTURBANCE [None]
  - HYPERTENSION [None]
  - TREMOR [None]
  - VERTIGO [None]
